FAERS Safety Report 11855071 (Version 1)
Quarter: 2015Q4

REPORT INFORMATION
  Report Type: Spontaneous
  Country: US (occurrence: None)
  Receive Date: 20151218
  Receipt Date: 20151218
  Transmission Date: 20160305
  Serious: No
  Sender: FDA-Public Use
  Company Number: None

PATIENT
  Age: 68 Year
  Sex: Male

DRUGS (10)
  1. LANTUS [Concomitant]
     Active Substance: INSULIN GLARGINE
  2. DILTIAZEM [Concomitant]
     Active Substance: DILTIAZEM
  3. LUPRON [Concomitant]
     Active Substance: LEUPROLIDE ACETATE
  4. FUROSEMIDE. [Concomitant]
     Active Substance: FUROSEMIDE
  5. XTANDI [Suspect]
     Active Substance: ENZALUTAMIDE
  6. AMIODARONE [Concomitant]
     Active Substance: AMIODARONE
  7. CRESTOR [Concomitant]
     Active Substance: ROSUVASTATIN CALCIUM
  8. ELIQUIS [Concomitant]
     Active Substance: APIXABAN
  9. HUMALOG [Concomitant]
     Active Substance: INSULIN LISPRO
  10. PORLIA [Concomitant]

REACTIONS (1)
  - Dyspnoea [None]

NARRATIVE: CASE EVENT DATE: 20151217
